FAERS Safety Report 20469119 (Version 2)
Quarter: 2022Q1

REPORT INFORMATION
  Report Type: Spontaneous
  Country: US (occurrence: US)
  Receive Date: 20220214
  Receipt Date: 20220215
  Transmission Date: 20220423
  Serious: No
  Sender: FDA-Public Use
  Company Number: US-JNJFOC-20220224224

PATIENT

DRUGS (1)
  1. IMODIUM [Suspect]
     Active Substance: LOPERAMIDE HYDROCHLORIDE
     Indication: Food allergy
     Dosage: PILLS OR THE SOFT GELS
     Route: 048

REACTIONS (3)
  - Product use in unapproved indication [Unknown]
  - Product blister packaging issue [Unknown]
  - Off label use [Unknown]
